FAERS Safety Report 7398655-5 (Version None)
Quarter: 2011Q2

REPORT INFORMATION
  Report Type: 
  Country: None (occurrence: None)
  Receive Date: 20110407
  Receipt Date: 20110331
  Transmission Date: 20111010
  Serious: No
  Sender: FDA-Public Use
  Company Number: US-BIOGENIDEC-2011BI012269

PATIENT
  Age: 41 Year
  Sex: Male

DRUGS (1)
  1. TYSABRI [Suspect]
     Indication: MULTIPLE SCLEROSIS
     Route: 042
     Dates: start: 20100113, end: 20101208

REACTIONS (8)
  - OSTEOPOROSIS [None]
  - DRUG INEFFECTIVE [None]
  - SPINAL FRACTURE [None]
  - BACK PAIN [None]
  - SPINAL COLUMN STENOSIS [None]
  - FALL [None]
  - SPINAL DISORDER [None]
  - MUSCLE SPASTICITY [None]
